FAERS Safety Report 4315345-3 (Version None)
Quarter: 2004Q1

REPORT INFORMATION
  Report Type: 
  Country: None (occurrence: None)
  Receive Date: 20040310
  Receipt Date: 20040310
  Transmission Date: 20041129
  Serious: Yes (Other)
  Sender: FDA-Public Use
  Company Number: None

PATIENT
  Sex: Female
  Weight: 59.9 kg

DRUGS (15)
  1. THALIDOMIDE 50 MG CELGENE [Suspect]
     Indication: GLIOMA
     Dosage: 500 MG QHS ORAL
     Route: 048
     Dates: start: 20021028, end: 20040217
  2. THALIDOMIDE 50 MG CELGENE [Suspect]
     Indication: NEOPLASM RECURRENCE
     Dosage: 500 MG QHS ORAL
     Route: 048
     Dates: start: 20021028, end: 20040217
  3. CELEBREX [Suspect]
     Indication: GLIOMA
     Dosage: 400 MG BID ORAL
     Route: 048
     Dates: start: 20021028, end: 20040217
  4. CELEBREX [Suspect]
     Indication: NEOPLASM RECURRENCE
     Dosage: 400 MG BID ORAL
     Route: 048
     Dates: start: 20021028, end: 20040217
  5. ETOPOSIDE [Concomitant]
  6. CYCLOPHOSPHAMIDE [Concomitant]
  7. DILANTIN [Concomitant]
  8. KEPPRA [Concomitant]
  9. DEXAMETHASONE [Concomitant]
  10. OS-CAL [Concomitant]
  11. FOSAMAX [Concomitant]
  12. MULTI-VITAMIN [Concomitant]
  13. COLACE [Concomitant]
  14. ALLEGRA [Concomitant]
  15. ZOFRAN [Concomitant]

REACTIONS (8)
  - ANXIETY [None]
  - CHEST DISCOMFORT [None]
  - COUGH [None]
  - DYSPNOEA [None]
  - MUSCULOSKELETAL DISORDER [None]
  - PAIN [None]
  - RIB FRACTURE [None]
  - URINARY TRACT INFECTION [None]
